FAERS Safety Report 5765424-9 (Version None)
Quarter: 2008Q2

REPORT INFORMATION
  Report Type: 
  Country: None (occurrence: None)
  Receive Date: 20080605
  Receipt Date: 20080520
  Transmission Date: 20081010
  Serious: Yes (Death)
  Sender: FDA-Public Use
  Company Number: 2008S1008563

PATIENT
  Age: 57 Year
  Sex: Female

DRUGS (4)
  1. PREDNISOLONE [Suspect]
     Indication: IMMUNOSUPPRESSION
     Dosage: 8 MG, ORAL; DAILY
     Route: 048
  2. CYCLOSPORINE [Suspect]
     Indication: IMMUNOSUPPRESSION
     Dosage: 50 MG, TWICE A DAY; ORAL
     Route: 048
  3. AZATHIOPRINE [Suspect]
     Indication: IMMUNOSUPPRESSION
  4. CYCLOPHOSPHAMIDE [Suspect]
     Indication: IMMUNOSUPPRESSION

REACTIONS (9)
  - ASCITES [None]
  - BONE MARROW FAILURE [None]
  - NODULE [None]
  - POST TRANSPLANT LYMPHOPROLIFERATIVE DISORDER [None]
  - RASH PAPULAR [None]
  - SKIN NECROSIS [None]
  - SKIN ULCER [None]
  - STAPHYLOCOCCAL SEPSIS [None]
  - TRANSAMINASES INCREASED [None]
